FAERS Safety Report 6431349-9 (Version None)
Quarter: 2009Q4

REPORT INFORMATION
  Report Type: 
  Country: None (occurrence: None)
  Receive Date: 20091106
  Receipt Date: 20091027
  Transmission Date: 20100525
  Serious: Yes (Other)
  Sender: FDA-Public Use
  Company Number: BR-JNJFOC-20091008537

PATIENT
  Age: 43 Year
  Sex: Male

DRUGS (3)
  1. INFLIXIMAB [Suspect]
     Dosage: 3RD DOSE
     Route: 042
  2. INFLIXIMAB [Suspect]
     Indication: PSORIASIS
     Dosage: WEEKS 0, 2, AND 6
     Route: 042
  3. METHOTREXATE [Concomitant]
     Indication: INHIBITING ANTIBODIES
     Route: 048

REACTIONS (1)
  - SPLEEN TUBERCULOSIS [None]
